FAERS Safety Report 19517521 (Version 2)
Quarter: 2021Q3

REPORT INFORMATION
  Report Type: Spontaneous
  Country: DE (occurrence: DE)
  Receive Date: 20210712
  Receipt Date: 20210817
  Transmission Date: 20211014
  Serious: Yes (Other)
  Sender: FDA-Public Use
  Company Number: DE-UCBSA-2021032610

PATIENT
  Age: 3 Year
  Sex: Male

DRUGS (9)
  1. ZONEGRAN [Suspect]
     Active Substance: ZONISAMIDE
     Indication: EPILEPSY WITH MYOCLONIC-ATONIC SEIZURES
     Dosage: UNK
  2. VALPROATE [Suspect]
     Active Substance: VALPROIC ACID
     Indication: EPILEPSY WITH MYOCLONIC-ATONIC SEIZURES
     Dosage: UNK
  3. PRIMIDONE. [Suspect]
     Active Substance: PRIMIDONE
     Indication: EPILEPSY WITH MYOCLONIC-ATONIC SEIZURES
     Dosage: UNK
  4. LEVETIRACETAM. [Suspect]
     Active Substance: LEVETIRACETAM
     Indication: EPILEPSY WITH MYOCLONIC-ATONIC SEIZURES
     Dosage: UNK
  5. CLOBAZAM. [Suspect]
     Active Substance: CLOBAZAM
     Indication: EPILEPSY WITH MYOCLONIC-ATONIC SEIZURES
     Dosage: UNK
  6. LAMOTRIGINE. [Suspect]
     Active Substance: LAMOTRIGINE
     Indication: EPILEPSY WITH MYOCLONIC-ATONIC SEIZURES
     Dosage: UNK
  7. ETHOSUXIMIDE. [Suspect]
     Active Substance: ETHOSUXIMIDE
     Indication: EPILEPSY WITH MYOCLONIC-ATONIC SEIZURES
     Dosage: UNK
  8. CLONAZEPAM. [Suspect]
     Active Substance: CLONAZEPAM
     Indication: EPILEPSY WITH MYOCLONIC-ATONIC SEIZURES
     Dosage: UNK
  9. METHYLPREDNISOLONE. [Suspect]
     Active Substance: METHYLPREDNISOLONE
     Indication: PRODUCT USED FOR UNKNOWN INDICATION
     Dosage: UNK

REACTIONS (8)
  - Drug ineffective [Unknown]
  - Fatigue [Unknown]
  - Ataxia [Unknown]
  - Status epilepticus [Recovered/Resolved]
  - Off label use [Unknown]
  - Encephalopathy [Unknown]
  - Developmental delay [Unknown]
  - Somnolence [Unknown]
